FAERS Safety Report 7416991-0 (Version None)
Quarter: 2011Q2

REPORT INFORMATION
  Report Type: 
  Country: None (occurrence: None)
  Receive Date: 20110415
  Receipt Date: 20110407
  Transmission Date: 20111010
  Serious: Yes (Hospitalization)
  Sender: FDA-Public Use
  Company Number: US-US-EMD SERONO, INC.-7048573

PATIENT
  Sex: Female

DRUGS (3)
  1. REBIF [Suspect]
     Indication: MULTIPLE SCLEROSIS
     Route: 058
     Dates: start: 20110308, end: 20110321
  2. REBIF [Suspect]
     Route: 058
     Dates: start: 20110301, end: 20110324
  3. ANALGESIC [Concomitant]
     Indication: PREMEDICATION

REACTIONS (1)
  - MULTIPLE SCLEROSIS RELAPSE [None]
